FAERS Safety Report 12452656 (Version 1)
Quarter: 2016Q2

REPORT INFORMATION
  Report Type: Spontaneous
  Country: US (occurrence: US)
  Receive Date: 20160609
  Receipt Date: 20160609
  Transmission Date: 20160815
  Serious: No
  Sender: FDA-Public Use
  Company Number: US-GLAXOSMITHKLINE-US2016079672

PATIENT
  Sex: Female

DRUGS (1)
  1. NICORETTE [Suspect]
     Active Substance: NICOTINE
     Indication: NICOTINE DEPENDENCE
     Dosage: 4 MG, UNK
     Dates: start: 2015

REACTIONS (3)
  - Nicotine dependence [Not Recovered/Not Resolved]
  - Product use issue [Unknown]
  - Tongue discolouration [Unknown]
